FAERS Safety Report 7049015-8 (Version None)
Quarter: 2010Q4

REPORT INFORMATION
  Report Type: 
  Country: None (occurrence: None)
  Receive Date: 20101018
  Receipt Date: 20101008
  Transmission Date: 20110411
  Serious: No
  Sender: FDA-Public Use
  Company Number: KR-JNJFOC-20101002952

PATIENT
  Age: 58 Year
  Sex: Female

DRUGS (3)
  1. DURAGESIC-100 [Suspect]
     Indication: PAIN MANAGEMENT
     Route: 062
  2. MOTILIUM-M [Concomitant]
     Indication: ANTIEMETIC SUPPORTIVE CARE
     Route: 048
  3. UNKNOWN MEDICATION [Concomitant]
     Route: 065

REACTIONS (4)
  - DRUG ADMINISTRATION ERROR [None]
  - HEADACHE [None]
  - NAUSEA [None]
  - SOMNOLENCE [None]
